FAERS Safety Report 7426262-4 (Version None)
Quarter: 2011Q2

REPORT INFORMATION
  Report Type: 
  Country: None (occurrence: None)
  Receive Date: 20110420
  Receipt Date: 20101230
  Transmission Date: 20111010
  Serious: Yes (Hospitalization)
  Sender: FDA-Public Use
  Company Number: A0902045A

PATIENT
  Age: 75 Year
  Sex: Female

DRUGS (9)
  1. FLONASE [Suspect]
     Dosage: 2SPR TWICE PER DAY
     Route: 045
     Dates: start: 20080101
  2. AMANTADINE HCL [Concomitant]
  3. GALANTAMINE HYDROBROMIDE [Concomitant]
  4. STALEVO 100 [Concomitant]
  5. DEPAKOTE [Concomitant]
  6. AUGMENTIN [Suspect]
     Route: 048
     Dates: start: 20100701
  7. REQUIP [Suspect]
     Indication: PARKINSON'S DISEASE
     Dosage: 6MG THREE TIMES PER DAY
     Route: 048
     Dates: start: 20080101
  8. NORVASC [Concomitant]
  9. AMLODIPINE [Concomitant]

REACTIONS (4)
  - BURNING SENSATION [None]
  - DRY SKIN [None]
  - RASH [None]
  - SKIN EXFOLIATION [None]
